FAERS Safety Report 9416048 (Version 5)
Quarter: 2013Q3

REPORT INFORMATION
  Report Type: Report from Study
  Country: CA (occurrence: CA)
  Receive Date: 20130724
  Receipt Date: 20130829
  Transmission Date: 20140515
  Serious: Yes (Other)
  Sender: FDA-Public Use
  Company Number: CA-ROCHE-1245104

PATIENT
  Age: 43 Year
  Sex: Male
  Weight: 98 kg

DRUGS (5)
  1. AVASTIN [Suspect]
     Indication: GLIOBLASTOMA
     Route: 042
     Dates: start: 20130508, end: 20130814
  2. FRAGMIN [Suspect]
     Indication: PRODUCT USED FOR UNKNOWN INDICATION
     Route: 065
     Dates: start: 201008
  3. KEPPRA [Concomitant]
  4. RANITIDINE [Concomitant]
  5. DEXAMETHASONE [Concomitant]

REACTIONS (10)
  - Agitation [Unknown]
  - Flat affect [Unknown]
  - Weight increased [Unknown]
  - Injection site haemorrhage [Not Recovered/Not Resolved]
  - Heart rate increased [Unknown]
  - Gingival bleeding [Not Recovered/Not Resolved]
  - Lethargy [Not Recovered/Not Resolved]
  - Hypersomnia [Not Recovered/Not Resolved]
  - Hypokinesia [Not Recovered/Not Resolved]
  - Disease progression [Unknown]
